FAERS Safety Report 7889898-2 (Version None)
Quarter: 2011Q4

REPORT INFORMATION
  Report Type: 
  Country: None (occurrence: None)
  Receive Date: 20111103
  Receipt Date: 20111021
  Transmission Date: 20120403
  Serious: Yes (Hospitalization)
  Sender: FDA-Public Use
  Company Number: KR-MYLANLABS-2011S1022104

PATIENT
  Age: 60 Year
  Sex: Male

DRUGS (12)
  1. CLONAZEPAM [Concomitant]
     Indication: DEPRESSION
     Dosage: 0.5MG
     Route: 065
  2. ALPRAZOLAM [Concomitant]
     Indication: DEPRESSION
     Route: 065
  3. ASPIRIN [Concomitant]
     Indication: HYPERTENSION
     Route: 065
  4. ASPIRIN [Concomitant]
     Indication: MYOCARDIAL INFARCTION
     Route: 065
  5. CLOPIDOGREL [Concomitant]
     Indication: MYOCARDIAL INFARCTION
     Route: 065
  6. TEMISARTAN [Concomitant]
     Indication: HYPERTENSION
     Route: 065
  7. CLOPIDOGREL [Concomitant]
     Indication: HYPERTENSION
     Route: 065
  8. ESCITALOPRAM [Concomitant]
     Indication: DEPRESSION
     Dosage: 10MG
     Route: 065
  9. SIMVASTATIN [Concomitant]
     Indication: HYPERTENSION
     Route: 065
  10. SIMVASTATIN [Concomitant]
     Indication: MYOCARDIAL INFARCTION
     Route: 065
  11. BUPROPION HCL [Suspect]
     Indication: DEPRESSION
     Route: 065
     Dates: start: 20101201
  12. TEMISARTAN [Concomitant]
     Indication: MYOCARDIAL INFARCTION
     Route: 065

REACTIONS (1)
  - HYPONATRAEMIA [None]
